FAERS Safety Report 5806493-7 (Version None)
Quarter: 2008Q3

REPORT INFORMATION
  Report Type: 
  Country: None (occurrence: None)
  Receive Date: 20080710
  Receipt Date: 20080703
  Transmission Date: 20090109
  Serious: Yes (Other)
  Sender: FDA-Public Use
  Company Number: GB-PFIZER INC-2008055466

PATIENT

DRUGS (3)
  1. SERTRALINE [Suspect]
     Indication: DEPRESSION
     Route: 064
  2. SOLPADOL [Concomitant]
     Dates: start: 20080101, end: 20080401
  3. ANTIBIOTICS [Concomitant]
     Dates: start: 20080401, end: 20080401

REACTIONS (2)
  - DRUG EXPOSURE DURING PREGNANCY [None]
  - PULMONARY HYPERTENSION [None]
